FAERS Safety Report 7623750-2 (Version None)
Quarter: 2011Q3

REPORT INFORMATION
  Report Type: 
  Country: None (occurrence: None)
  Receive Date: 20110720
  Receipt Date: 20110713
  Transmission Date: 20111222
  Serious: Yes (Hospitalization)
  Sender: FDA-Public Use
  Company Number: JP-GLAXOSMITHKLINE-B0715549A

PATIENT
  Sex: Female
  Weight: 42 kg

DRUGS (10)
  1. ZOVIRAX [Concomitant]
     Dosage: 1000MG PER DAY
     Route: 048
     Dates: start: 20071010, end: 20071120
  2. RAMELTEON [Concomitant]
     Dosage: .3MG PER DAY
     Route: 042
     Dates: start: 20071011, end: 20071016
  3. FUNGUARD [Concomitant]
     Dosage: 40MG PER DAY
     Route: 042
     Dates: start: 20071010, end: 20071031
  4. ALKERAN [Suspect]
     Indication: STEM CELL TRANSPLANT
     Dosage: 190MG PER DAY
     Route: 042
     Dates: start: 20071016, end: 20071016
  5. LANSOPRAZOLE [Concomitant]
     Dosage: 15MG PER DAY
     Route: 042
     Dates: start: 20071009, end: 20071109
  6. CIPROFLOXACIN HCL [Concomitant]
     Dosage: 400MG PER DAY
     Route: 042
     Dates: start: 20071005, end: 20071026
  7. CYTARABINE [Suspect]
     Indication: STEM CELL TRANSPLANT
     Dosage: 540MG PER DAY
     Route: 042
     Dates: start: 20071012, end: 20071015
  8. CYMERIN [Suspect]
     Indication: STEM CELL TRANSPLANT
     Dosage: 400MG PER DAY
     Route: 042
     Dates: start: 20071011, end: 20071011
  9. VEPESID [Suspect]
     Indication: STEM CELL TRANSPLANT
     Dosage: 270MG PER DAY
     Route: 042
     Dates: start: 20071012, end: 20071015
  10. URSO 250 [Concomitant]
     Dosage: 600MG PER DAY
     Route: 048
     Dates: start: 20071011, end: 20071026

REACTIONS (1)
  - FEBRILE NEUTROPENIA [None]
